FAERS Safety Report 13831667 (Version 1)
Quarter: 2017Q3

REPORT INFORMATION
  Report Type: Report from Study
  Country: CA (occurrence: CA)
  Receive Date: 20170803
  Receipt Date: 20170803
  Transmission Date: 20171127
  Serious: Yes (Other)
  Sender: FDA-Public Use
  Company Number: CA-REGENERON PHARMACEUTICALS, INC.-2017-19635

PATIENT

DRUGS (2)
  1. EYLEA [Suspect]
     Active Substance: AFLIBERCEPT
     Dosage: RIGHT EYE, AFTER CATARACT SURGERY
     Dates: start: 20170707
  2. EYLEA [Suspect]
     Active Substance: AFLIBERCEPT
     Indication: DIABETIC RETINAL OEDEMA
     Dosage: MONTHLY; SOMETIMES BILATERALLY BUT SOME TIMES ONLY IN ONE EYE
     Dates: start: 20160223

REACTIONS (2)
  - Cataract operation [Unknown]
  - Cataract operation [Unknown]

NARRATIVE: CASE EVENT DATE: 20170525
